FAERS Safety Report 15957349 (Version 1)
Quarter: 2019Q1

REPORT INFORMATION
  Report Type: Spontaneous
  Country: US (occurrence: US)
  Receive Date: 20190213
  Receipt Date: 20190213
  Transmission Date: 20190417
  Serious: Yes (Hospitalization)
  Sender: FDA-Public Use
  Company Number: US-VERTEX PHARMACEUTICALS-2019-001146

PATIENT
  Age: 16 Year
  Sex: Female

DRUGS (13)
  1. FLOVENT [Concomitant]
     Active Substance: FLUTICASONE PROPIONATE
  2. PHYTONADIONE. [Concomitant]
     Active Substance: PHYTONADIONE
  3. VITAMIN D3 [Concomitant]
     Active Substance: CHOLECALCIFEROL
  4. URSODIOL. [Concomitant]
     Active Substance: URSODIOL
  5. IRON [Concomitant]
     Active Substance: IRON
  6. ORKAMBI [Suspect]
     Active Substance: IVACAFTOR\LUMACAFTOR
     Indication: CYSTIC FIBROSIS
     Dosage: 2 TABLETS (200/125 MG), BID
     Route: 048
     Dates: start: 20150828
  7. SODIUM CHLORIDE. [Concomitant]
     Active Substance: SODIUM CHLORIDE
  8. PULMOZYME [Concomitant]
     Active Substance: DORNASE ALFA
  9. PREVACID [Concomitant]
     Active Substance: LANSOPRAZOLE
  10. CREON [Concomitant]
     Active Substance: PANCRELIPASE AMYLASE\PANCRELIPASE LIPASE\PANCRELIPASE PROTEASE
  11. VENTOLIN [Concomitant]
     Active Substance: ALBUTEROL SULFATE
  12. VITAMIN E                          /00110501/ [Concomitant]
     Active Substance: TOCOPHEROL
  13. FERROUS SULFATE. [Concomitant]
     Active Substance: FERROUS SULFATE

REACTIONS (1)
  - Dyspnoea [Recovering/Resolving]

NARRATIVE: CASE EVENT DATE: 201901
